FAERS Safety Report 7352854-7 (Version None)
Quarter: 2011Q1

REPORT INFORMATION
  Report Type: 
  Country: None (occurrence: None)
  Receive Date: 20110304
  Receipt Date: 20110222
  Transmission Date: 20110831
  Serious: Yes (Hospitalization)
  Sender: FDA-Public Use
  Company Number: 836007

PATIENT
  Sex: Male
  Weight: 46 kg

DRUGS (23)
  1. CYCLOPHOSPHAMIDE [Concomitant]
  2. DIMENHYDRINATE [Concomitant]
  3. METHYLPREDNISOLONE SOD SUCC FOR INJ., USP (METHYLPREDNISOLONE) [Concomitant]
  4. ONDANSETRON [Concomitant]
  5. SULFAMETHOXAZOLE AND TRIMETHOPRIM [Concomitant]
  6. VINCRISTINE SULFATE [Concomitant]
  7. CYTARABINE [Suspect]
     Indication: PRODUCT USED FOR UNKNOWN INDICATION
     Dosage: 76MG,1 EVERY 12 HOUR(S); 30MG,1 EVERY 50 DAY(S)
  8. RITUXAN [Concomitant]
  9. CIPROFLOXACIN [Concomitant]
  10. DOXORUBICIN HCL FOR INJECTION [Concomitant]
  11. HYDROCORTISONE [Concomitant]
  12. (DOCUSATE) [Concomitant]
  13. LEUCOVORIN CALCIUM [Concomitant]
  14. FAMCICLOVIR [Concomitant]
  15. HYDROXYZINE [Concomitant]
  16. MESNA [Concomitant]
  17. VANCOMYCIN HYDROCHLORIDE [Concomitant]
  18. ETOPOSIDE [Concomitant]
  19. LORAZEPAM [Concomitant]
  20. (METPCLOPRAMIDE) [Concomitant]
  21. TOBRAMYCIN [Concomitant]
  22. METHOTREXATE [Concomitant]
  23. PREDNISONE [Concomitant]

REACTIONS (4)
  - RASH PRURITIC [None]
  - PALMAR-PLANTAR ERYTHRODYSAESTHESIA SYNDROME [None]
  - DERMATITIS ALLERGIC [None]
  - BURNING SENSATION [None]
